FAERS Safety Report 6343236-5 (Version None)
Quarter: 2009Q3

REPORT INFORMATION
  Report Type: 
  Country: None (occurrence: None)
  Receive Date: 20090908
  Receipt Date: 20090825
  Transmission Date: 20100115
  Serious: Yes (Other)
  Sender: FDA-Public Use
  Company Number: PHHY2008BR32919

PATIENT
  Age: 60 Year
  Sex: Female

DRUGS (1)
  1. FEMARA [Suspect]
     Indication: BREAST CANCER
     Dosage: 2.5 MG, QD
     Route: 048
     Dates: start: 20071201

REACTIONS (7)
  - BASAL CELL CARCINOMA [None]
  - BLOOD CHOLESTEROL INCREASED [None]
  - BONE DENSITY DECREASED [None]
  - GAMMA-GLUTAMYLTRANSFERASE ABNORMAL [None]
  - HYPERTENSION [None]
  - OSTEOPENIA [None]
  - RASH [None]
